FAERS Safety Report 23043405 (Version 1)
Quarter: 2023Q4

REPORT INFORMATION
  Report Type: Spontaneous
  Country: US (occurrence: US)
  Receive Date: 20231009
  Receipt Date: 20231009
  Transmission Date: 20240110
  Serious: No
  Sender: FDA-Public Use
  Company Number: US-BRISTOL-MYERS SQUIBB COMPANY-2023-138705

PATIENT
  Age: 49 Year
  Sex: Female
  Weight: 44.91 kg

DRUGS (1)
  1. ELIQUIS [Suspect]
     Active Substance: APIXABAN
     Indication: Thrombosis
     Route: 048
     Dates: start: 202302

REACTIONS (1)
  - Menstrual discomfort [Recovered/Resolved]

NARRATIVE: CASE EVENT DATE: 20230201
